FAERS Safety Report 18645488 (Version 1)
Quarter: 2020Q4

REPORT INFORMATION
  Report Type: Spontaneous
  Country: US (occurrence: US)
  Receive Date: 20201222
  Receipt Date: 20201222
  Transmission Date: 20210114
  Serious: No
  Sender: FDA-Public Use
  Company Number: US-RECORDATI RARE DISEASES-2103290

PATIENT
  Age: 78 Year
  Sex: Male

DRUGS (1)
  1. CYSTADANE [Suspect]
     Active Substance: BETAINE
     Indication: BLOOD HOMOCYSTEINE ABNORMAL

REACTIONS (1)
  - Hydrocele operation [Recovered/Resolved]

NARRATIVE: CASE EVENT DATE: 20200309
